FAERS Safety Report 8073311-9 (Version None)
Quarter: 2011Q4

REPORT INFORMATION
  Report Type: 
  Country: None (occurrence: None)
  Receive Date: 20111221
  Receipt Date: 20110830
  Transmission Date: 20120403
  Serious: Yes (Death)
  Sender: FDA-Public Use
  Company Number: PHEH2010US03858

PATIENT
  Age: 75 Year
  Sex: Male
  Weight: 95 kg

DRUGS (4)
  1. EXJADE [Suspect]
     Indication: APLASTIC ANAEMIA
     Dosage: 1250 MG, QD, ORAL, ORAL
     Route: 048
     Dates: start: 20100416
  2. EXJADE [Suspect]
     Indication: BLOOD IRON
     Dosage: 1250 MG, QD, ORAL, ORAL
     Route: 048
     Dates: start: 20100416
  3. EXJADE [Suspect]
     Indication: APLASTIC ANAEMIA
     Dosage: 1250 MG, QD, ORAL, ORAL
     Route: 048
     Dates: start: 20091110, end: 20100106
  4. EXJADE [Suspect]
     Indication: BLOOD IRON
     Dosage: 1250 MG, QD, ORAL, ORAL
     Route: 048
     Dates: start: 20091110, end: 20100106

REACTIONS (7)
  - SERUM FERRITIN INCREASED [None]
  - ABDOMINAL PAIN [None]
  - ARTHRALGIA [None]
  - OEDEMA [None]
  - MYALGIA [None]
  - NEOPLASM MALIGNANT [None]
  - NEOPLASM PROGRESSION [None]
